FAERS Safety Report 8327069 (Version 5)
Quarter: 2015Q2

REPORT INFORMATION
  Report Type: Spontaneous
  Country: US (occurrence: US)
  Receive Date: 20120109
  Receipt Date: 20150524
  Transmission Date: 20150821
  Serious: Yes (Other)
  Sender: FDA-Public Use
  Company Number: US-JNJFOC-20120100361

PATIENT
  Age: 84 Year
  Sex: Male
  Weight: 95.26 kg

DRUGS (14)
  1. PREDNISONE. [Suspect]
     Active Substance: PREDNISONE
     Indication: PROSTATE CANCER
     Route: 048
     Dates: start: 20111015
  2. NORVASC [Concomitant]
     Active Substance: AMLODIPINE BESYLATE
     Indication: HYPERTENSION
     Route: 065
     Dates: start: 2010
  3. CHLORTHALIDONE. [Suspect]
     Active Substance: CHLORTHALIDONE
     Indication: HYPERTENSION
     Dosage: 25 - 50 MG
     Route: 048
     Dates: start: 2007, end: 20111221
  4. METFORMIN [Concomitant]
     Active Substance: METFORMIN HYDROCHLORIDE
     Indication: DIABETES MELLITUS
     Route: 048
     Dates: start: 20111221
  5. VASOTEC [Concomitant]
     Active Substance: ENALAPRIL MALEATE
     Indication: BLOOD PRESSURE
     Route: 065
  6. POTASSIUM CITRATE. [Concomitant]
     Active Substance: POTASSIUM CITRATE
     Indication: MINERAL SUPPLEMENTATION
     Dosage: DAILY FOR 3 DAYS
     Route: 048
     Dates: start: 20111221, end: 201112
  7. HYDROCHLOROTHIAZIDE. [Concomitant]
     Active Substance: HYDROCHLOROTHIAZIDE
     Indication: DIURETIC THERAPY
     Route: 065
     Dates: end: 20111221
  8. POTASSIUM CITRATE. [Concomitant]
     Active Substance: POTASSIUM CITRATE
     Indication: MINERAL SUPPLEMENTATION
     Route: 048
  9. CHLORTHALIDONE. [Suspect]
     Active Substance: CHLORTHALIDONE
     Indication: DIURETIC THERAPY
     Dosage: 25 - 50 MG
     Route: 048
     Dates: start: 2007, end: 20111221
  10. METFORMIN [Concomitant]
     Active Substance: METFORMIN HYDROCHLORIDE
     Indication: DIABETES MELLITUS
     Route: 048
     Dates: start: 201106
  11. POTASSIUM CITRATE. [Concomitant]
     Active Substance: POTASSIUM CITRATE
     Indication: MINERAL SUPPLEMENTATION
     Route: 048
     Dates: start: 2007
  12. POTASSIUM CITRATE. [Concomitant]
     Active Substance: POTASSIUM CITRATE
     Indication: MINERAL SUPPLEMENTATION
     Route: 048
     Dates: start: 201112
  13. PREDNISONE. [Suspect]
     Active Substance: PREDNISONE
     Indication: PROSTATE CANCER
     Dosage: DOSE TAPERED; LOWERED EVERY 4 DAYS REDUCING DOSE
     Route: 048
     Dates: start: 20111221, end: 20111224
  14. ZYTIGA [Suspect]
     Active Substance: ABIRATERONE ACETATE
     Indication: PROSTATE CANCER
     Route: 048
     Dates: start: 20111015, end: 20111221

REACTIONS (9)
  - Prostatic specific antigen increased [Unknown]
  - Blood creatinine increased [Unknown]
  - Diarrhoea [Unknown]
  - Urinary retention [Recovered/Resolved]
  - Blood potassium decreased [Recovered/Resolved]
  - Blood urea increased [Unknown]
  - Hyperphagia [Unknown]
  - Blood glucose increased [Unknown]
  - Hormone level abnormal [Unknown]

NARRATIVE: CASE EVENT DATE: 20111221
